FAERS Safety Report 23995791 (Version 1)
Quarter: 2024Q2

REPORT INFORMATION
  Report Type: Spontaneous
  Country: US (occurrence: None)
  Receive Date: 20240615
  Receipt Date: 20240615
  Transmission Date: 20240715
  Serious: No
  Sender: FDA-Public Use
  Company Number: None

PATIENT
  Age: 68 Year
  Sex: Female

DRUGS (5)
  1. EXODERMA BRIGHTENING MELLOW FOAM [Suspect]
     Active Substance: ASPARAGINE\GLYCERIN
     Indication: Routine health maintenance
     Dates: start: 20240201, end: 20240401
  2. EXODERMA BRIGHTENING PEELING GEL [Suspect]
     Active Substance: ASPARAGINE\GLYCERIN
     Indication: Routine health maintenance
  3. CANNABIS SATIVA SEED\HERBALS [Suspect]
     Active Substance: CANNABIS SATIVA SEED\HERBALS
     Indication: Routine health maintenance
  4. DIETARY SUPPLEMENT [Suspect]
     Active Substance: DIETARY SUPPLEMENT
     Indication: Routine health maintenance
  5. CANNABIS SATIVA SEED\HERBALS [Suspect]
     Active Substance: CANNABIS SATIVA SEED\HERBALS
     Indication: Routine health maintenance

REACTIONS (10)
  - Product communication issue [None]
  - Product label issue [None]
  - Product advertising issue [None]
  - Pruritus [None]
  - Erythema [None]
  - Rash [None]
  - Paraesthesia [None]
  - Diarrhoea [None]
  - Breast cancer stage I [None]
  - Product formulation issue [None]

NARRATIVE: CASE EVENT DATE: 20240501
